FAERS Safety Report 23963609 (Version 2)
Quarter: 2024Q2

REPORT INFORMATION
  Report Type: Spontaneous
  Country: JP (occurrence: JP)
  Receive Date: 20240611
  Receipt Date: 20240620
  Transmission Date: 20240716
  Serious: Yes (Hospitalization)
  Sender: FDA-Public Use
  Company Number: JP-002147023-PHJP2018JP014860

PATIENT
  Age: 14 Year
  Sex: Male
  Weight: 48 kg

DRUGS (3)
  1. TEGRETOL [Suspect]
     Active Substance: CARBAMAZEPINE
     Indication: Epilepsy
     Dosage: UNK
     Route: 048
  2. TEGRETOL [Suspect]
     Active Substance: CARBAMAZEPINE
     Dosage: UNK
     Route: 065
  3. INTUNIV [Concomitant]
     Active Substance: GUANFACINE HYDROCHLORIDE
     Indication: Attention deficit hyperactivity disorder
     Dosage: UNK
     Route: 065

REACTIONS (9)
  - Toxic epidermal necrolysis [Recovering/Resolving]
  - Pyrexia [Unknown]
  - Erythema [Recovering/Resolving]
  - Conjunctival hyperaemia [Unknown]
  - Oral mucosa erosion [Unknown]
  - Skin erosion [Recovering/Resolving]
  - Nikolsky^s sign [Recovering/Resolving]
  - Drug ineffective [Unknown]
  - SJS-TEN overlap [Recovering/Resolving]
